FAERS Safety Report 25784341 (Version 3)
Quarter: 2025Q4

REPORT INFORMATION
  Report Type: Spontaneous
  Country: US (occurrence: US)
  Receive Date: 20250910
  Receipt Date: 20251022
  Transmission Date: 20260117
  Serious: Yes (Other)
  Sender: BRISTOL-MYERS SQUIBB COMPANY
  Company Number: US-BRISTOL-MYERS SQUIBB COMPANY-2025-124466

PATIENT
  Age: 32 Year
  Sex: Male

DRUGS (2)
  1. POMALYST [Suspect]
     Active Substance: POMALIDOMIDE
     Indication: Hereditary haemorrhagic telangiectasia
  2. POMALYST [Suspect]
     Active Substance: POMALIDOMIDE
     Dosage: DAILY FOR 21 DAYS

REACTIONS (5)
  - Epistaxis [Unknown]
  - Product supply issue [Unknown]
  - Neutropenia [Unknown]
  - Headache [Unknown]
  - Therapy interrupted [Unknown]
